FAERS Safety Report 14205725 (Version 3)
Quarter: 2018Q3

REPORT INFORMATION
  Report Type: Spontaneous
  Country: FR (occurrence: FR)
  Receive Date: 20171120
  Receipt Date: 20180914
  Transmission Date: 20181010
  Serious: Yes (Hospitalization, Disabling, Other)
  Sender: FDA-Public Use
  Company Number: FR-PFIZER INC-2017493484

PATIENT
  Age: 35 Year
  Sex: Female
  Weight: 58 kg

DRUGS (15)
  1. VANCOMYCINE SANDOZ [Suspect]
     Active Substance: VANCOMYCIN
     Indication: STAPHYLOCOCCAL INFECTION
     Dosage: 3 G, DAILY
     Route: 042
     Dates: start: 20171001, end: 20171001
  2. ZOPICLONE ZENTIVA [Suspect]
     Active Substance: ZOPICLONE
     Indication: INSOMNIA
     Dosage: 7.5 MG, UNK
     Route: 048
     Dates: start: 20171001, end: 2017
  3. BACTRIM [Suspect]
     Active Substance: SULFAMETHOXAZOLE\TRIMETHOPRIM
     Indication: INFECTION
     Dosage: 5 DF, DAILY (2 TABLETS MORNING AND EVENING,
     Route: 048
     Dates: start: 20171013, end: 20171023
  4. FORTUM [Suspect]
     Active Substance: CEFTAZIDIME
     Indication: STAPHYLOCOCCAL INFECTION
     Dosage: 3 G, DAILY
     Route: 042
     Dates: start: 20171001, end: 20171001
  5. LOVENOX [Suspect]
     Active Substance: ENOXAPARIN SODIUM
     Indication: THROMBOSIS PROPHYLAXIS
     Dosage: UNK
     Route: 058
     Dates: start: 20171001, end: 2017
  6. URBANYL [Suspect]
     Active Substance: CLOBAZAM
     Indication: EPILEPSY
     Dosage: UNK
     Route: 048
     Dates: start: 20171018, end: 20171023
  7. URBANYL [Suspect]
     Active Substance: CLOBAZAM
     Dosage: 5 MG, UNK
     Route: 048
  8. CETIRIZINE [Concomitant]
     Active Substance: CETIRIZINE HYDROCHLORIDE
     Dosage: UNK
     Dates: start: 20171023
  9. VANCOMYCINE SANDOZ [Suspect]
     Active Substance: VANCOMYCIN
     Dosage: 2.5 MG, DAILY
     Route: 042
     Dates: start: 20171020, end: 20171023
  10. LAMICTAL [Concomitant]
     Active Substance: LAMOTRIGINE
     Dosage: UNK, 2X/DAY (75 MG IN THE MORNING AND 50 MG IN THE EVENING)
  11. LINEZOLIDE [Concomitant]
     Active Substance: LINEZOLID
     Dosage: 600 MG, (600 MG MORNING AND EVENING)
  12. LEDERFOLINE [Suspect]
     Active Substance: LEUCOVORIN CALCIUM
     Indication: ANAEMIA PROPHYLAXIS
     Dosage: UNK
     Route: 048
     Dates: start: 20171013, end: 20171023
  13. VANCOMYCINE SANDOZ [Suspect]
     Active Substance: VANCOMYCIN
     Dosage: 3 G, DAILY
     Route: 042
     Dates: start: 20171013, end: 20171020
  14. LYRICA [Concomitant]
     Active Substance: PREGABALIN
     Dosage: UNK
     Dates: start: 20170411
  15. NEURONTIN [Concomitant]
     Active Substance: GABAPENTIN
     Dosage: 300 MG, UNK
     Dates: start: 20170207

REACTIONS (2)
  - Rash maculo-papular [Recovered/Resolved]
  - Seizure [Unknown]

NARRATIVE: CASE EVENT DATE: 20171012
